FAERS Safety Report 26183896 (Version 1)
Quarter: 2025Q4

REPORT INFORMATION
  Report Type: Spontaneous
  Country: NZ (occurrence: NZ)
  Receive Date: 20251222
  Receipt Date: 20251222
  Transmission Date: 20260117
  Serious: Yes (Other)
  Sender: BAXTER
  Company Number: NZ-BAXTER-2025BAX025827

PATIENT
  Age: 56 Year

DRUGS (6)
  1. ANHYDROUS DEXTROSE [Suspect]
     Active Substance: ANHYDROUS DEXTROSE
     Indication: Medication dilution
     Dosage: UNK
     Route: 042
     Dates: start: 20251111
  2. ANHYDROUS DEXTROSE [Suspect]
     Active Substance: ANHYDROUS DEXTROSE
     Dosage: UNK
     Route: 042
     Dates: start: 20251125
  3. ANHYDROUS DEXTROSE [Suspect]
     Active Substance: ANHYDROUS DEXTROSE
     Dosage: UNK
     Route: 042
     Dates: start: 20251209
  4. IRINOTECAN [Suspect]
     Active Substance: IRINOTECAN
     Dosage: 235 MG
     Route: 042
     Dates: start: 20251111
  5. IRINOTECAN [Suspect]
     Active Substance: IRINOTECAN
     Dosage: 235 MG
     Route: 042
     Dates: start: 20251125
  6. IRINOTECAN [Suspect]
     Active Substance: IRINOTECAN
     Dosage: 235 MG
     Route: 042
     Dates: start: 20251209

REACTIONS (1)
  - Neurotoxicity [Unknown]

NARRATIVE: CASE EVENT DATE: 20251111
